FAERS Safety Report 5125788-6 (Version None)
Quarter: 2006Q4

REPORT INFORMATION
  Report Type: 
  Country: None (occurrence: None)
  Receive Date: 20061010
  Receipt Date: 20061010
  Transmission Date: 20070319
  Serious: Yes (Hospitalization)
  Sender: FDA-Public Use
  Company Number: None

PATIENT
  Sex: Female
  Weight: 57.1532 kg

DRUGS (3)
  1. CETUXIMAB [Suspect]
     Indication: PANCREATIC CARCINOMA METASTATIC
     Dosage: 310MG EVERY 3 WEEKS IV
     Route: 042
     Dates: start: 20060925
  2. GEMCITABINE [Suspect]
     Indication: PANCREATIC CARCINOMA METASTATIC
     Dosage: 1150MG EVERY 3 WEEKS IV
     Route: 042
     Dates: start: 20060925
  3. OXALIPLATIN [Suspect]
     Indication: PANCREATIC CARCINOMA METASTATIC
     Dosage: 155 MG EVERY 3 WEEKS IV
     Route: 042
     Dates: start: 20060926

REACTIONS (2)
  - PYREXIA [None]
  - SEPSIS [None]
